FAERS Safety Report 17650392 (Version 4)
Quarter: 2020Q2

REPORT INFORMATION
  Report Type: Not Available
  Country: US (occurrence: US)
  Receive Date: 20200408
  Receipt Date: 20200415
  Transmission Date: 20200713
  Serious: Yes (Death)
  Sender: FDA-Public Use
  Company Number: US-NEUROCRINE BIOSCIENCES INC.-2020NBI01148

PATIENT
  Sex: Female

DRUGS (15)
  1. GENTAMYCIN [Concomitant]
     Active Substance: GENTAMICIN
  2. TRIAMTERENE HCTZ [Concomitant]
     Active Substance: HYDROCHLOROTHIAZIDE\TRIAMTERENE
     Dosage: 37.5/ 25 MG
  3. NAMENDA [Concomitant]
     Active Substance: MEMANTINE HYDROCHLORIDE
  4. FLUOXETINE [Concomitant]
     Active Substance: FLUOXETINE HYDROCHLORIDE
  5. NORCO [Concomitant]
     Active Substance: ACETAMINOPHEN\HYDROCODONE BITARTRATE
     Indication: PAIN
     Dosage: 7.5 (NO UNITS PROVIDED)
  6. PRAVASTATIN. [Concomitant]
     Active Substance: PRAVASTATIN
  7. FLUCONAZOLE. [Concomitant]
     Active Substance: FLUCONAZOLE
  8. ASPIRIN. [Concomitant]
     Active Substance: ASPIRIN
  9. DONEPEZIL. [Concomitant]
     Active Substance: DONEPEZIL
  10. INGREZZA [Suspect]
     Active Substance: VALBENAZINE
     Indication: TARDIVE DYSKINESIA
     Route: 048
     Dates: start: 20191029
  11. TRIAMTERENE. [Concomitant]
     Active Substance: TRIAMTERENE
  12. LORATADINE. [Concomitant]
     Active Substance: LORATADINE
  13. RISPERIDONE. [Concomitant]
     Active Substance: RISPERIDONE
     Dosage: AT BEDTIME
  14. HYDROCODONE [Concomitant]
     Active Substance: HYDROCODONE
  15. SYMBICORT [Concomitant]
     Active Substance: BUDESONIDE\FORMOTEROL FUMARATE DIHYDRATE
     Dosage: 160/4.5

REACTIONS (1)
  - Cardiac failure congestive [Fatal]
